FAERS Safety Report 13306799 (Version 1)
Quarter: 2017Q1

REPORT INFORMATION
  Report Type: Spontaneous
  Country: US (occurrence: US)
  Receive Date: 20170308
  Receipt Date: 20170308
  Transmission Date: 20170428
  Serious: No
  Sender: FDA-Public Use
  Company Number: US-AKORN PHARMACEUTICALS-2017AKN00066

PATIENT
  Sex: Female

DRUGS (2)
  1. MYORISAN [Suspect]
     Active Substance: ISOTRETINOIN
     Dosage: 2 DOSAGE UNITS, UNK
     Dates: start: 20160927, end: 2016
  2. MYORISAN [Suspect]
     Active Substance: ISOTRETINOIN
     Dosage: 1 DOSAGE UNITS, UNK
     Dates: start: 2016, end: 20161126

REACTIONS (1)
  - Hepatic enzyme increased [Unknown]

NARRATIVE: CASE EVENT DATE: 2016
